FAERS Safety Report 6501303-7 (Version None)
Quarter: 2009Q4

REPORT INFORMATION
  Report Type: 
  Country: None (occurrence: None)
  Receive Date: 20091127
  Receipt Date: 20090924
  Transmission Date: 20100525
  Serious: No
  Sender: FDA-Public Use
  Company Number: 001854

PATIENT
  Sex: Male

DRUGS (2)
  1. LACOSAMIDE [Suspect]
     Indication: EPILEPSY
     Dosage: 100 MG BID
  2. FLOMAX [Concomitant]

REACTIONS (1)
  - URINARY INCONTINENCE [None]
